FAERS Safety Report 9901190 (Version 1)
Quarter: 2014Q1

REPORT INFORMATION
  Report Type: Report from Study
  Country: US (occurrence: US)
  Receive Date: 20140217
  Receipt Date: 20140217
  Transmission Date: 20141002
  Serious: Yes (Other)
  Sender: FDA-Public Use
  Company Number: US-ASTELLAS-2014US001610

PATIENT
  Age: 53 Year
  Sex: Male

DRUGS (2)
  1. TACROLIMUS CAPSULES [Suspect]
     Indication: LIVER TRANSPLANT
     Dosage: UID/QD
     Route: 065
  2. CORTICOSTEROIDS [Concomitant]
     Indication: LIVER TRANSPLANT
     Dosage: UNK
     Route: 065

REACTIONS (1)
  - Hepatic artery thrombosis [Not Recovered/Not Resolved]
